FAERS Safety Report 7860457-0 (Version None)
Quarter: 2011Q4

REPORT INFORMATION
  Report Type: 
  Country: None (occurrence: None)
  Receive Date: 20111027
  Receipt Date: 20111020
  Transmission Date: 20120403
  Serious: Yes (Other)
  Sender: FDA-Public Use
  Company Number: PHHY2011DE89906

PATIENT
  Sex: Female

DRUGS (3)
  1. EXTAVIA [Suspect]
     Indication: MULTIPLE SCLEROSIS
     Dosage: 1 ML, QOD
     Route: 058
     Dates: start: 20090901
  2. BISOPROLOL [Concomitant]
     Route: 048
  3. RAMIPRIL [Concomitant]
     Route: 048

REACTIONS (3)
  - MUSCULOSKELETAL PAIN [None]
  - SYSTEMIC LUPUS ERYTHEMATOSUS [None]
  - VISUAL IMPAIRMENT [None]
